FAERS Safety Report 22587631 (Version 1)
Quarter: 2023Q2

REPORT INFORMATION
  Report Type: Spontaneous
  Country: US (occurrence: US)
  Receive Date: 20230612
  Receipt Date: 20230612
  Transmission Date: 20230721
  Serious: Yes (Death, Hospitalization, Other)
  Sender: FDA-Public Use
  Company Number: US-009507513-2306USA005371

PATIENT
  Sex: Male

DRUGS (1)
  1. VERQUVO [Suspect]
     Active Substance: VERICIGUAT
     Dosage: 5 MG / UNKNOWN FREQUENCY
     Route: 048

REACTIONS (4)
  - Death [Fatal]
  - Cardiac failure [Unknown]
  - Hospitalisation [Unknown]
  - Malaise [Unknown]
